FAERS Safety Report 25945812 (Version 2)
Quarter: 2025Q4

REPORT INFORMATION
  Report Type: Report from Study
  Country: CA (occurrence: CA)
  Receive Date: 20251021
  Receipt Date: 20251231
  Transmission Date: 20260118
  Serious: Yes (Hospitalization)
  Sender: PFIZER
  Company Number: CA-PFIZER INC-202500183827

PATIENT
  Age: 79 Year
  Sex: Female

DRUGS (1)
  1. VELSIPITY [Suspect]
     Active Substance: ETRASIMOD ARGININE
     Indication: Colitis ulcerative
     Dosage: 2 MG, 1X/DAY, EVERY MORNING AT 10AM
     Route: 048
     Dates: start: 20250916

REACTIONS (5)
  - Condition aggravated [Recovering/Resolving]
  - Dizziness [Unknown]
  - Nausea [Recovered/Resolved]
  - Treatment failure [Unknown]
  - Muscular weakness [Not Recovered/Not Resolved]

NARRATIVE: CASE EVENT DATE: 20250101
